FAERS Safety Report 8271878 (Version 3)
Quarter: 2013Q4

REPORT INFORMATION
  Report Type: Spontaneous
  Country: US (occurrence: US)
  Receive Date: 20111202
  Receipt Date: 20131205
  Transmission Date: 20140711
  Serious: Yes (Hospitalization, Other)
  Sender: FDA-Public Use
  Company Number: US-PFIZER INC-2011290752

PATIENT
  Age: 22 Year
  Sex: Male

DRUGS (6)
  1. CHANTIX [Suspect]
     Dosage: UNK
     Route: 048
     Dates: start: 20080501, end: 20081216
  2. CHANTIX [Suspect]
     Dosage: STARTING MONTH PACK
     Route: 048
     Dates: start: 20080516, end: 20080613
  3. CHANTIX [Suspect]
     Dosage: STARTING MONTH PACK
     Route: 048
     Dates: start: 20081212, end: 20090109
  4. CHANTIX [Suspect]
     Dosage: TWO PILLS A DAY
     Route: 048
     Dates: start: 20081212
  5. CLONAZEPAM [Concomitant]
     Dosage: 0.5 MG, UNK
     Dates: start: 20080414
  6. KLONOPIN [Concomitant]
     Dosage: UNK

REACTIONS (5)
  - Suicide attempt [Unknown]
  - Depression [Unknown]
  - Mood altered [Unknown]
  - Abnormal behaviour [Unknown]
  - Impaired driving ability [Unknown]
